FAERS Safety Report 6431285-8 (Version None)
Quarter: 2009Q4

REPORT INFORMATION
  Report Type: 
  Country: None (occurrence: None)
  Receive Date: 20091106
  Receipt Date: 20091026
  Transmission Date: 20100525
  Serious: Yes (Death, Hospitalization)
  Sender: FDA-Public Use
  Company Number: ZA-PFIZER INC-2009207660

PATIENT
  Age: 47 Year
  Sex: Male
  Weight: 64.8 kg

DRUGS (8)
  1. BLINDED *NO SUBJECT DRUG [Suspect]
     Indication: COLORECTAL CANCER
     Dosage: 37.5 MG, 1X/DAY
     Route: 048
     Dates: start: 20080508, end: 20090406
  2. BLINDED *PLACEBO [Suspect]
     Indication: COLORECTAL CANCER
     Dosage: 37.5 MG, 1X/DAY
     Route: 048
     Dates: start: 20080508, end: 20090406
  3. BLINDED SUNITINIB MALATE [Suspect]
     Indication: COLORECTAL CANCER
     Dosage: 37.5 MG, 1X/DAY
     Route: 048
     Dates: start: 20080508, end: 20090406
  4. IRINOTECAN HCL [Suspect]
     Indication: COLORECTAL CANCER
     Dosage: 327.6 MG, CYCLIC, EVERY 2 WEEKS
     Route: 042
     Dates: start: 20080508, end: 20090406
  5. *FLUOROURACIL [Suspect]
     Indication: COLORECTAL CANCER
     Dosage: 728 MG, EVERY 2 WEEKS
     Route: 040
     Dates: start: 20080508, end: 20090406
  6. *FLUOROURACIL [Suspect]
     Dosage: 4368 MG, EVERY 2 WEELS
     Route: 041
     Dates: start: 20080508, end: 20090406
  7. *CALCIUM FOLINATE [Suspect]
     Indication: COLORECTAL CANCER
     Dosage: 364 MG, EVERY 2 WEEKS
     Route: 042
     Dates: start: 20080508, end: 20090406
  8. ENOXAPARIN SODIUM [Concomitant]
     Indication: AXILLARY VEIN THROMBOSIS
     Dosage: 80 MG, 2X/DAY
     Dates: start: 20081205, end: 20090424

REACTIONS (2)
  - ANAEMIA [None]
  - LOWER RESPIRATORY TRACT INFECTION [None]
